FAERS Safety Report 5333326-8 (Version None)
Quarter: 2007Q2

REPORT INFORMATION
  Report Type: 
  Country: None (occurrence: None)
  Receive Date: 20070524
  Receipt Date: 20070515
  Transmission Date: 20071010
  Serious: Yes (Hospitalization)
  Sender: FDA-Public Use
  Company Number: AT-BRISTOL-MYERS SQUIBB COMPANY-13772546

PATIENT
  Age: 61 Year
  Sex: Male

DRUGS (5)
  1. EFAVIRENZ [Suspect]
     Dates: start: 20040601
  2. STAVUDINE [Suspect]
     Dates: start: 20040601
  3. ACETYLSALICYLIC ACID SRT [Suspect]
  4. TENOFOVIR [Suspect]
     Dates: start: 20040601
  5. LAMIVUDINE [Suspect]
     Dates: start: 20050501

REACTIONS (4)
  - ACUTE MYOCARDIAL INFARCTION [None]
  - CARDIAC FAILURE [None]
  - POLYNEUROPATHY [None]
  - THROMBOSIS IN DEVICE [None]
